FAERS Safety Report 9136819 (Version 1)
Quarter: 2013Q1

REPORT INFORMATION
  Report Type: Spontaneous
  Country: US (occurrence: US)
  Receive Date: 20130304
  Receipt Date: 20130304
  Transmission Date: 20140127
  Serious: No
  Sender: FDA-Public Use
  Company Number: US-ABBOTT-12P-163-0967324-00

PATIENT
  Sex: Male
  Weight: 104.42 kg

DRUGS (4)
  1. ANDROGEL 1% [Suspect]
     Indication: BLOOD TESTOSTERONE DECREASED
     Dosage: TWO 5 GRAM PACKETS DAILY
     Route: 061
     Dates: start: 2011
  2. METFORMIN [Concomitant]
     Indication: DIABETES MELLITUS
  3. GLUCOPHAGE [Concomitant]
     Indication: DIABETES MELLITUS
  4. CRESTOR [Concomitant]
     Indication: PRODUCT USED FOR UNKNOWN INDICATION

REACTIONS (3)
  - Drug administered at inappropriate site [Unknown]
  - Drug ineffective [Recovered/Resolved]
  - Dysphonia [Not Recovered/Not Resolved]
